FAERS Safety Report 6471481-7 (Version None)
Quarter: 2009Q4

REPORT INFORMATION
  Report Type: 
  Country: None (occurrence: None)
  Receive Date: 20091203
  Receipt Date: 20080305
  Transmission Date: 20100525
  Serious: Yes (Other)
  Sender: FDA-Public Use
  Company Number: GB-ELI_LILLY_AND_COMPANY-GB200802006906

PATIENT
  Age: 80 Year
  Sex: Female

DRUGS (12)
  1. FORTEO [Suspect]
     Indication: OSTEOPOROSIS
     Dosage: 20 UG, UNK
     Route: 058
     Dates: start: 20080226
  2. CACIT D3 [Concomitant]
     Dosage: 500 MG, DAILY (1/D)
  3. ALENDRONIC ACID [Concomitant]
     Dosage: 70 MG, WEEKLY (1/W)
  4. CO-CODAMOL [Concomitant]
     Dosage: 8/500 2 D/F, 2/D
  5. CO-CODAMOL [Concomitant]
     Dosage: 30/500 2 D/F, EACH EVENING
  6. ASPIRIN [Concomitant]
     Dosage: 75 MG, DAILY (1/D)
  7. FRUSEMIDE [Concomitant]
     Dosage: 20 MG, DAILY (1/D)
  8. OMEPRAZOLE [Concomitant]
     Dosage: 20 MG, DAILY (1/D)
  9. MOVICOL /01053601/ [Concomitant]
     Dosage: 2 D/F, DAILY (1/D)
  10. ALBUTEROL [Concomitant]
     Dosage: 2 D/F, AS NEEDED
     Route: 055
  11. SERETIDE [Concomitant]
     Dosage: 2 D/F, 2/D
     Route: 055
  12. IPRATROPIUM BROMIDE W/SALBUTAMOL [Concomitant]
     Dosage: 2 D/F, 4/D
     Route: 055

REACTIONS (4)
  - ARTHRALGIA [None]
  - BACK PAIN [None]
  - BLOOD PRESSURE INCREASED [None]
  - SYNCOPE [None]
